FAERS Safety Report 6793722-9 (Version None)
Quarter: 2010Q2

REPORT INFORMATION
  Report Type: 
  Country: None (occurrence: None)
  Receive Date: 20100624
  Receipt Date: 20090226
  Transmission Date: 20101027
  Serious: No
  Sender: FDA-Public Use
  Company Number: US-PFIZER INC-2009166316

PATIENT
  Sex: Female
  Weight: 49.9 kg

DRUGS (2)
  1. DEPO-PROVERA [Suspect]
     Indication: CONTRACEPTION
     Dosage: 150 MG, EVERY 3 MONTHS
     Dates: start: 19960101
  2. ZYRTEC [Concomitant]

REACTIONS (2)
  - BONE PAIN [None]
  - MYALGIA [None]
